FAERS Safety Report 4570847-X (Version None)
Quarter: 2005Q1

REPORT INFORMATION
  Report Type: 
  Country: None (occurrence: None)
  Receive Date: 20050118
  Receipt Date: 20041007
  Transmission Date: 20050727
  Serious: Yes (Other)
  Sender: FDA-Public Use
  Company Number: HQWYE700811OCT04

PATIENT
  Age: 56 Year
  Sex: Female

DRUGS (3)
  1. PREMPRO [Suspect]
     Indication: MENOPAUSAL SYMPTOMS
     Dosage: ORAL
     Route: 048
     Dates: start: 19890101, end: 20030101
  2. PREMARIN [Suspect]
  3. PROVERA [Suspect]

REACTIONS (1)
  - BREAST CANCER [None]
